FAERS Safety Report 26207319 (Version 1)
Quarter: 2025Q4

REPORT INFORMATION
  Report Type: Spontaneous
  Country: CN (occurrence: CN)
  Receive Date: 20251229
  Receipt Date: 20251229
  Transmission Date: 20260117
  Serious: Yes (Hospitalization)
  Sender: NOVARTIS
  Company Number: CN-002147023-NVSC2025CN197187

PATIENT
  Age: 59 Year
  Sex: Female
  Weight: 71.6 kg

DRUGS (2)
  1. LETROZOLE [Suspect]
     Active Substance: LETROZOLE
     Indication: Endocrine disorder prophylaxis
     Dosage: 2.5 MG, QD
     Route: 048
     Dates: start: 20251122, end: 20251203
  2. DALPICICLIB ISETHIONATE [Concomitant]
     Active Substance: DALPICICLIB ISETHIONATE
     Indication: Endocrine disorder prophylaxis
     Dosage: 150 MG, QD
     Route: 048
     Dates: start: 20251113, end: 20251203

REACTIONS (6)
  - Hypersensitivity [Recovering/Resolving]
  - Rash [Recovering/Resolving]
  - Drug eruption [Recovering/Resolving]
  - Rash maculo-papular [Recovering/Resolving]
  - Pruritus [Recovering/Resolving]
  - Off label use [Unknown]

NARRATIVE: CASE EVENT DATE: 20251201
